FAERS Safety Report 6823695-1 (Version None)
Quarter: 2010Q3

REPORT INFORMATION
  Report Type: 
  Country: None (occurrence: None)
  Receive Date: 20100708
  Receipt Date: 20060828
  Transmission Date: 20110219
  Serious: No
  Sender: FDA-Public Use
  Company Number: US-PFIZER INC-2006105692

PATIENT
  Sex: Female
  Weight: 56.7 kg

DRUGS (4)
  1. CHANTIX [Suspect]
     Indication: SMOKING CESSATION THERAPY
     Route: 048
     Dates: start: 20060801
  2. LEXAPRO [Concomitant]
     Route: 048
  3. PLAVIX [Concomitant]
     Route: 048
  4. ANTIHYPERTENSIVES [Concomitant]
     Route: 048

REACTIONS (1)
  - NAUSEA [None]
